FAERS Safety Report 20762950 (Version 3)
Quarter: 2022Q2

REPORT INFORMATION
  Report Type: Spontaneous
  Country: JP (occurrence: JP)
  Receive Date: 20220428
  Receipt Date: 20220623
  Transmission Date: 20220720
  Serious: Yes (Death, Other)
  Sender: FDA-Public Use
  Company Number: JP-CHUGAI-2022014561AA

PATIENT
  Age: 63 Year
  Sex: Male
  Weight: 55 kg

DRUGS (4)
  1. GAZYVA [Suspect]
     Active Substance: OBINUTUZUMAB
     Indication: Follicular lymphoma
     Dosage: 1000 MILLIGRAM, ONCE/WEEK
     Route: 041
     Dates: start: 20220215, end: 20220301
  2. GAZYVA [Suspect]
     Active Substance: OBINUTUZUMAB
     Dosage: 1000 MILLIGRAM, ONCE/4WEEKS
     Route: 041
     Dates: start: 20220315, end: 20220315
  3. BENDAMUSTINE HYDROCHLORIDE [Suspect]
     Active Substance: BENDAMUSTINE HYDROCHLORIDE
     Indication: Product used for unknown indication
     Dosage: 400 MILLIGRAM, ONCE/4WEEKS
     Route: 041
     Dates: start: 20220216, end: 20220316
  4. GRANISETRON [Concomitant]
     Active Substance: GRANISETRON
     Dosage: 3 MILLIGRAM, ONCE/4WEEKS
     Route: 041
     Dates: start: 20220216, end: 20220316

REACTIONS (3)
  - Myelosuppression [Unknown]
  - Disease progression [Fatal]
  - Sepsis [Recovered/Resolved]

NARRATIVE: CASE EVENT DATE: 20220322
